FAERS Safety Report 9371087 (Version 1)
Quarter: 2013Q2

REPORT INFORMATION
  Report Type: Spontaneous
  Country: US (occurrence: None)
  Receive Date: 20130626
  Receipt Date: 20130626
  Transmission Date: 20140414
  Serious: Yes (Death, Hospitalization)
  Sender: FDA-Public Use
  Company Number: None

PATIENT
  Age: 73 Year
  Sex: Male
  Weight: 157 kg

DRUGS (20)
  1. WARFARIN [Suspect]
     Indication: ATRIAL FIBRILLATION
     Dosage: 5   DAILY  PO
     Route: 048
     Dates: start: 20130603, end: 20130606
  2. LEVOFLOXACIN [Suspect]
     Indication: RESPIRATORY FAILURE
     Dosage: 750  DAILY  PO
     Route: 048
     Dates: start: 20130604, end: 20130607
  3. ALBUTEROL-IPRATROPIUM [Concomitant]
  4. ASPIRIN [Concomitant]
  5. BRIMONIDINE [Concomitant]
  6. CEFEPIME [Concomitant]
  7. ENOXAPARIN [Concomitant]
  8. ESCITALOPRAM [Concomitant]
  9. FUROSEMIDE [Concomitant]
  10. INSULIN ASPART [Concomitant]
  11. INSULIN GLARGINE [Concomitant]
  12. LATANOPROST [Concomitant]
  13. METHYLPREDNISOLONE [Concomitant]
  14. METOPROLOL [Concomitant]
  15. MOMETASONE [Concomitant]
  16. NYSTATIN POWDER [Concomitant]
  17. PRAVASTATIN [Concomitant]
  18. SALMETEROL [Concomitant]
  19. TERAZOSIN [Concomitant]
  20. VANCOMYCIN [Concomitant]

REACTIONS (3)
  - Haematoma [None]
  - International normalised ratio increased [None]
  - Drug interaction [None]
